FAERS Safety Report 13137107 (Version 1)
Quarter: 2017Q1

REPORT INFORMATION
  Report Type: Spontaneous
  Country: SE (occurrence: SE)
  Receive Date: 20170123
  Receipt Date: 20170123
  Transmission Date: 20170428
  Serious: Yes (Hospitalization)
  Sender: FDA-Public Use
  Company Number: SE-CIPLA LTD.-2017SE00829

PATIENT

DRUGS (4)
  1. ALVEDON [Suspect]
     Active Substance: ACETAMINOPHEN
     Dosage: 500 MG, UNK
     Route: 065
  2. ALVEDON [Suspect]
     Active Substance: ACETAMINOPHEN
     Dosage: 665 MG, UNK
     Route: 065
  3. VALIUM [Suspect]
     Active Substance: DIAZEPAM
     Dosage: UNK
     Route: 065
  4. HYDROXYZINE [Suspect]
     Active Substance: HYDROXYZINE HYDROCHLORIDE
     Dosage: UNK
     Route: 065

REACTIONS (11)
  - Respiratory rate increased [Unknown]
  - Analgesic drug level increased [Unknown]
  - Blood lactic acid increased [Unknown]
  - Vomiting [Unknown]
  - Suicide attempt [Unknown]
  - Abdominal pain [Unknown]
  - International normalised ratio increased [Unknown]
  - Overdose [Unknown]
  - Depressed level of consciousness [Unknown]
  - Faeces discoloured [Unknown]
  - Toxicity to various agents [Unknown]
